FAERS Safety Report 12360444 (Version 1)
Quarter: 2016Q2

REPORT INFORMATION
  Report Type: Spontaneous
  Country: US (occurrence: US)
  Receive Date: 20160512
  Receipt Date: 20160512
  Transmission Date: 20160815
  Serious: No
  Sender: FDA-Public Use
  Company Number: US-UNICHEM LABORATORIES LIMITED-UCM201601-000003

PATIENT
  Sex: Female
  Weight: 72.57 kg

DRUGS (3)
  1. DIVALPROEX SODIUM. [Suspect]
     Active Substance: DIVALPROEX SODIUM
     Indication: BIPOLAR DISORDER
  2. TRAZODONE [Concomitant]
     Active Substance: TRAZODONE HYDROCHLORIDE
     Indication: SLEEP DISORDER
  3. DIVALPROEX SODIUM. [Suspect]
     Active Substance: DIVALPROEX SODIUM

REACTIONS (3)
  - Pain in extremity [Not Recovered/Not Resolved]
  - Anxiety [Not Recovered/Not Resolved]
  - Laboratory test abnormal [Not Recovered/Not Resolved]
